FAERS Safety Report 7369182-6 (Version None)
Quarter: 2011Q1

REPORT INFORMATION
  Report Type: 
  Country: None (occurrence: None)
  Receive Date: 20110323
  Receipt Date: 20101102
  Transmission Date: 20110831
  Serious: Yes (Hospitalization)
  Sender: FDA-Public Use
  Company Number: KR-BAYER-201015017GPV

PATIENT
  Sex: Female
  Weight: 46 kg

DRUGS (111)
  1. ULTRACET [Concomitant]
     Indication: PROPHYLAXIS
     Dosage: 1 DF (DAILY DOSE), , ORAL
     Route: 048
     Dates: start: 20100308
  2. PHAZYME [Concomitant]
     Indication: DYSPEPSIA
     Dosage: 1 DF, TID
     Route: 048
     Dates: start: 20091221, end: 20091228
  3. KETOROLAC TROMETHAMINE [Concomitant]
     Dosage: 30 MG, BID
     Dates: start: 20091220, end: 20091220
  4. GABAPENTIN [Concomitant]
     Route: 042
     Dates: start: 20090104, end: 20090104
  5. BETAMETHASONE/DEXCHLORPHENIRAMINE MALEATE [Concomitant]
     Dosage: 500 ML, QD
     Route: 042
     Dates: start: 20090106, end: 20090106
  6. LACTEC [CACL ANHYDR,KCL,NACL,NA+ LACT] [Concomitant]
     Dosage: 1 L (DAILY DOSE), QD, INTRAVENOUS
     Route: 042
     Dates: start: 20090722, end: 20090725
  7. DEXTROSE W/POTASSIUM CHLORIDE AND NACL [Concomitant]
     Indication: DECREASED APPETITE
     Dosage: 1 L (DAILY DOSE), QD, INTRAVENOUS
     Route: 042
     Dates: start: 20090330, end: 20090330
  8. GASTER [Concomitant]
     Indication: PROPHYLAXIS
     Route: 042
     Dates: start: 20090722, end: 20090726
  9. MAGNESIUM OXIDE [Concomitant]
     Indication: CONSTIPATION PROPHYLAXIS
     Dosage: 1 DF (DAILY DOSE), , ORAL
     Route: 048
     Dates: start: 20100308
  10. MEGESTROL ACETATE [Concomitant]
     Indication: DECREASED APPETITE
     Dosage: 10 ML (DAILY DOSE), QD, ORAL
     Route: 048
     Dates: start: 20081222, end: 20081222
  11. IMIPENEM AND CILASTATIN SODIUM [Concomitant]
     Indication: PANCREATIC PSEUDOCYST
     Dosage: 1000 MG (DAILY DOSE), QD, INTRAVENOUS
     Route: 042
     Dates: start: 20081228, end: 20081228
  12. RED BLOOD CELLS [Concomitant]
     Indication: COLOSTOMY
     Route: 042
     Dates: start: 20081129, end: 20081129
  13. CEFOTAXIM [Concomitant]
     Indication: PANCREATIC PSEUDOCYST
     Route: 042
     Dates: start: 20081228, end: 20081228
  14. VITAMIN B COMPLEX CAP [Concomitant]
     Indication: ALANINE AMINOTRANSFERASE INCREASED
     Dosage: 1 DF (DAILY DOSE), QD, ORAL
     Route: 048
     Dates: start: 20090212, end: 20090309
  15. HUMULIN R [Concomitant]
     Dosage: 20 IU (DAILY DOSE), QD, INTRAVENOUS
     Route: 042
     Dates: start: 20081226, end: 20081226
  16. UNCODEABLE ^UNCLASSIFIABLE^ [Concomitant]
     Dosage: 500 ML (DAILY DOSE), QD, INTRAVENOUS
     Route: 042
     Dates: start: 20090101, end: 20090101
  17. ACETAMINOPHEN [Concomitant]
     Indication: PAIN
     Route: 048
     Dates: start: 20091216, end: 20091217
  18. NORMAL SALINE [Concomitant]
     Dosage: 100 ML (DAILY DOSE), PRN, INTRAVENOUS
     Route: 042
     Dates: start: 20090623, end: 20090727
  19. NORMAL SALINE [Concomitant]
     Dosage: 20 ML (DAILY DOSE), QD, INTRAVENOUS
     Route: 042
     Dates: start: 20090723, end: 20090723
  20. NORMAL SALINE [Concomitant]
     Route: 042
     Dates: start: 20090722, end: 20090726
  21. DEXTROSE 5% [Concomitant]
     Route: 042
     Dates: start: 20090723, end: 20090723
  22. LACTEC [CACL ANHYDR,KCL,NACL,NA+ LACT] [Concomitant]
     Dosage: 1000 ML (DAILY DOSE), QD, INTRAVENOUS
     Route: 042
     Dates: start: 20081230, end: 20081230
  23. KETOROLAC [Concomitant]
     Dosage: 30 MG (DAILY DOSE), QOD, INTRAMUSCULAR
     Route: 030
     Dates: start: 20091218, end: 20091218
  24. KETOROLAC [Concomitant]
     Route: 030
     Dates: start: 20091220, end: 20091220
  25. KETOROLAC [Concomitant]
     Dosage: 30 MG (DAILY DOSE), QD, INTRAVENOUS
     Route: 042
     Dates: start: 20100205, end: 20100205
  26. CALCIUM POLYSTYRENE SULFONATE [Concomitant]
     Indication: PANCREATIC PSEUDOCYST
     Dosage: 1 PACK
     Route: 048
     Dates: start: 20081226, end: 20081226
  27. FENTANYL [Concomitant]
     Indication: PROPHYLAXIS
     Dosage: 1500 ?G (DAILY DOSE), PRN, INTRAVENOUS
     Route: 042
     Dates: start: 20090723, end: 20090727
  28. GLYCOPYRROLATE [Concomitant]
     Dosage: 0.4 MG (DAILY DOSE), QD, INTRAVENOUS
     Route: 042
     Dates: start: 20090723, end: 20090723
  29. PROGYNOVA [Concomitant]
     Indication: PROPHYLAXIS
     Dosage: 2 MG (DAILY DOSE), QD, ORAL
     Route: 048
     Dates: start: 20091018
  30. EUPATILIN [Concomitant]
     Dosage: 60 MG (DAILY DOSE), QD, ORAL
     Route: 048
     Dates: start: 20081020, end: 20081203
  31. PHAZYME [Concomitant]
     Indication: PROPHYLAXIS
     Dosage: 1 DF (DAILY DOSE), QD, ORAL
     Route: 048
     Dates: start: 20081020, end: 20081220
  32. PHAZYME [Concomitant]
     Dosage: DAILY DOSE 1 DF
     Route: 048
     Dates: start: 20100308
  33. MORPHINE [Concomitant]
     Indication: PROPHYLAXIS AGAINST DEHYDRATION
     Dosage: 5 MG (DAILY DOSE), QD, INTRAVENOUS
     Route: 042
     Dates: start: 20081213, end: 20081213
  34. NORMAL SALINE [Concomitant]
     Indication: ABDOMINAL PAIN
     Dosage: 1000 ML (DAILY DOSE), QD, INTRAVENOUS
     Route: 042
     Dates: start: 20081213, end: 20081213
  35. CITOPCIN [Concomitant]
     Indication: CYSTITIS
     Route: 042
     Dates: start: 20081127, end: 20091129
  36. CITOPCIN [Concomitant]
     Indication: INFECTION
     Route: 048
     Dates: start: 20091221, end: 20091228
  37. KETOROLAC [Concomitant]
     Dosage: 30 MG (DAILY DOSE), QD, INTRAMUSCULAR
     Route: 030
     Dates: start: 20091216, end: 20091216
  38. INSULIN [INSULIN] [Concomitant]
     Indication: PROPHYLAXIS
     Dosage: 20 IU (DAILY DOSE), QD, INTRAVENOUS
     Route: 042
     Dates: start: 20081226, end: 20081226
  39. SOLUTIONS FOR PARENTERAL NUTRITION [Concomitant]
     Dosage: 500 ML (DAILY DOSE), QD, INTRAVENOUS
     Route: 042
     Dates: start: 20090106, end: 20090106
  40. DEMEROL [Concomitant]
     Indication: PAIN PROPHYLAXIS
     Dosage: 25 MG (DAILY DOSE), PRN, INTRAVENOUS
     Route: 042
     Dates: start: 20081129, end: 20081203
  41. PENTOTAL [Concomitant]
     Indication: COLOSTOMY
     Dosage: 300 MG (DAILY DOSE), QD, INTRAVENOUS
     Route: 042
     Dates: start: 20090723, end: 20090723
  42. GABAPENTIN [Concomitant]
     Dosage: 300 MG (DAILY DOSE), PRN, ORAL
     Route: 048
     Dates: start: 20090427, end: 20090430
  43. MORPHINE [Concomitant]
     Dosage: 5 MG (DAILY DOSE), PRN, INTRAVENOUS
     Route: 042
     Dates: start: 20081127, end: 20081127
  44. NORMAL SALINE [Concomitant]
     Dosage: 1 L (DAILY DOSE), QD, INTRAVENOUS
     Route: 042
     Dates: start: 20100205, end: 20100205
  45. DEXTROSE 5% [Concomitant]
     Indication: ABDOMINAL PAIN
     Dosage: 1000 ML (DAILY DOSE), QD, INTRAVENOUS
     Route: 042
     Dates: start: 20081222, end: 20081222
  46. LACTEC [CACL ANHYDR,KCL,NACL,NA+ LACT] [Concomitant]
     Indication: PROPHYLAXIS AGAINST DEHYDRATION
     Dosage: 500 ML (DAILY DOSE), QD, INTRAVENOUS
     Route: 042
     Dates: start: 20081127, end: 20081127
  47. LACTEC [CACL ANHYDR,KCL,NACL,NA+ LACT] [Concomitant]
     Dosage: 1 L (DAILY DOSE), QD, INTRAVENOUS
     Route: 042
     Dates: start: 20090723, end: 20090723
  48. KETOROLAC [Concomitant]
     Indication: PAIN IN EXTREMITY
     Dosage: 30 MG (DAILY DOSE), ,
     Dates: start: 20100205, end: 20100205
  49. LASIX [Concomitant]
     Indication: ABDOMINAL PAIN
     Dosage: 20 MG (DAILY DOSE), QD, INTRAVENOUS
     Route: 042
     Dates: start: 20081226, end: 20081227
  50. UNCODEABLE ^UNCLASSIFIABLE^ [Concomitant]
     Indication: PANCREATIC PSEUDOCYST
     Route: 042
     Dates: start: 20081228, end: 20081228
  51. ZOFRAN [Concomitant]
     Indication: PAIN
     Dosage: 4 MG (DAILY DOSE), PRN, INTRAVENOUS
     Route: 042
     Dates: start: 20090723, end: 20090727
  52. ASCORBIC ACID [Concomitant]
     Indication: PROPHYLAXIS
     Route: 042
     Dates: start: 20090722, end: 20090727
  53. SORAFENIB (RAF KINASE INHIBITOR) [Suspect]
     Indication: OVARIAN EPITHELIAL CANCER
     Dosage: 400 MG, BID
     Dates: start: 20091215, end: 20100204
  54. K CONTIN [Concomitant]
     Indication: PANCREATIC PSEUDOCYST
     Route: 042
     Dates: start: 20090722, end: 20090727
  55. MORPHINE [Concomitant]
     Dosage: 3 MG (DAILY DOSE), QD, INTRAVENOUS
     Route: 042
     Dates: start: 20081226, end: 20081226
  56. NORMAL SALINE [Concomitant]
     Indication: PROPHYLAXIS AGAINST DEHYDRATION
     Dosage: 1000 ML (DAILY DOSE), QD, INTRAVENOUS
     Route: 042
     Dates: start: 20081226, end: 20081229
  57. NORMAL SALINE [Concomitant]
     Indication: PROPHYLAXIS
     Dosage: 500 ML (DAILY DOSE), QD, INTRAVENOUS
     Route: 042
     Dates: start: 20081128, end: 20081128
  58. BETAMETHASONE/DEXCHLORPHENIRAMINE MALEATE [Concomitant]
     Dosage: 500 ML (DAILY DOSE), QD, INTRAVENOUS
     Route: 042
     Dates: start: 20081222, end: 20081222
  59. DEXTROSE W/POTASSIUM CHLORIDE AND NACL [Concomitant]
     Indication: PROPHYLAXIS
     Dosage: 1000 ML (DAILY DOSE), QD, INTRAVENOUS
     Route: 042
     Dates: start: 20090105, end: 20090106
  60. DEXTROSE W/POTASSIUM CHLORIDE AND NACL [Concomitant]
     Dosage: 1 L (DAILY DOSE), QD, INTRAVENOUS
     Route: 042
     Dates: start: 20091220, end: 20091220
  61. NAXEN [Concomitant]
     Route: 048
     Dates: start: 20090205, end: 20090219
  62. SODIUM CHLORIDE [Concomitant]
     Route: 042
     Dates: start: 20090723, end: 20090723
  63. TRAMADOL HCL [Concomitant]
     Indication: PAIN MANAGEMENT
     Dosage: 100 MG (DAILY DOSE), , INTRAMUSCULAR
     Route: 030
     Dates: start: 20100228, end: 20100308
  64. SOLUTIONS FOR PARENTERAL NUTRITION [Concomitant]
     Dosage: 500 ML (DAILY DOSE), QD, INTRAVENOUS
     Route: 042
     Dates: start: 20090103, end: 20090103
  65. MULTI-VITAMIN [Concomitant]
     Indication: ASTHENIA
     Dosage: 5 ML (DAILY DOSE), QD, INTRAVENOUS
     Route: 042
     Dates: start: 20090330, end: 20090330
  66. ESMERON [Concomitant]
     Dosage: 50 MG (DAILY DOSE), QD, INTRAVENOUS
     Route: 042
     Dates: start: 20090723, end: 20090723
  67. PHAZYME [Concomitant]
     Dosage: 1 DF, TID
     Route: 048
     Dates: start: 20090727, end: 20090730
  68. KETOROLAC TROMETHAMINE [Concomitant]
     Dosage: 30 MG, UNK
     Route: 030
     Dates: start: 20091212, end: 20091216
  69. MORPHINE [Concomitant]
     Dosage: 40 MG (DAILY DOSE), PRN, INTRAVENOUS
     Route: 042
     Dates: start: 20090723, end: 20090727
  70. DEXTROSE 5% [Concomitant]
     Dosage: 1000 ML (DAILY DOSE), QD, INTRAVENOUS
     Route: 042
     Dates: start: 20081231, end: 20081231
  71. DEXTROSE W/POTASSIUM CHLORIDE AND NACL [Concomitant]
     Indication: ASTHENIA
     Dosage: 1000 ML (DAILY DOSE), QD, INTRAVENOUS
     Route: 042
     Dates: start: 20081230, end: 20081231
  72. SODIUM CHLORIDE [Concomitant]
     Indication: PROPHYLAXIS
     Route: 042
     Dates: start: 20090722, end: 20090727
  73. EUPATILIN [Concomitant]
     Indication: PROPHYLAXIS
     Dosage: 60 MG (DAILY DOSE), QD, ORAL
     Route: 048
     Dates: start: 20081020, end: 20081203
  74. SOLUTIONS FOR PARENTERAL NUTRITION [Concomitant]
     Indication: PROPHYLAXIS
     Dosage: 500 ML (DAILY DOSE), QD, INTRAVENOUS
     Route: 042
     Dates: start: 20081222, end: 20081222
  75. SOLUTIONS FOR PARENTERAL NUTRITION [Concomitant]
     Dosage: 500 ML (DAILY DOSE), QD, INTRAVENOUS
     Route: 042
     Dates: start: 20081229, end: 20081231
  76. VENOFERRUM [SACCHARATED IRON OXIDE] [Concomitant]
     Indication: DIZZINESS
     Dosage: 5 ML (DAILY DOSE), QD, INTRAVENOUS
     Route: 042
     Dates: start: 20090105, end: 20090105
  77. CEFOTETAN [Concomitant]
     Indication: INFECTION PROPHYLAXIS
     Route: 042
     Dates: start: 20090723, end: 20090724
  78. ALBUMIN (HUMAN) [Concomitant]
     Indication: PROPHYLAXIS
     Dosage: 100 ML (DAILY DOSE), QD, INTRAVENOUS
     Route: 042
     Dates: start: 20090725, end: 20090725
  79. UNCODEABLE ^UNCLASSIFIABLE^ [Concomitant]
     Dosage: 1 PACK
     Route: 048
     Dates: start: 20081226, end: 20081226
  80. PENTHOTAL [Concomitant]
     Dosage: 300 MG (DAILY DOSE), QD, INTRAVENOUS
     Route: 042
     Dates: start: 20090723, end: 20090723
  81. POTASSIUM CHLORIDE [Concomitant]
     Indication: PROPHYLAXIS
     Route: 042
     Dates: start: 20090722, end: 20090727
  82. ACETAMINOPHEN [Concomitant]
     Indication: PAIN IN EXTREMITY
     Dosage: 650 MG (DAILY DOSE), PRN, ORAL
     Route: 048
     Dates: start: 20090730, end: 20090817
  83. KETOROLAC TROMETHAMINE [Concomitant]
     Dosage: 30 MG (DAILY DOSE), QD, INTRAVENOUS
     Route: 042
     Dates: start: 20081228, end: 20081228
  84. BETAMETHASONE/DEXCHLORPHENIRAMINE MALEATE [Concomitant]
     Dosage: 500 MG, QD
     Route: 042
     Dates: start: 20081229, end: 20081231
  85. BETAMETHASONE/DEXCHLORPHENIRAMINE MALEATE [Concomitant]
     Dosage: 500 MG, QD
     Route: 042
     Dates: start: 20090103, end: 20090103
  86. GASTER [Concomitant]
     Route: 048
     Dates: start: 20091220, end: 20091221
  87. TRIDOL [Concomitant]
     Indication: ABDOMINAL PAIN
     Dosage: 100 MG (DAILY DOSE), PRN, INTRAVENOUS
     Route: 042
     Dates: start: 20081226, end: 20090106
  88. MAGMIL [Concomitant]
     Indication: GASTRITIS PROPHYLAXIS
     Route: 048
     Dates: start: 20090102, end: 20090102
  89. LEGALON [Concomitant]
     Indication: ASPARTATE AMINOTRANSFERASE INCREASED
     Route: 042
     Dates: start: 20090212, end: 20090309
  90. URSODIOL [Concomitant]
     Indication: PROPHYLAXIS AGAINST DEHYDRATION
     Route: 048
     Dates: start: 20090212, end: 20090309
  91. PURINOL [ALLOPURINOL] [Concomitant]
     Dosage: 15 MG (DAILY DOSE), QD, INTRAVENOUS
     Route: 042
     Dates: start: 20090723, end: 20090723
  92. DEXTROSE 50% [Concomitant]
     Indication: PROPHYLAXIS
     Route: 042
     Dates: start: 20090722, end: 20090727
  93. BROMHEXINE [Concomitant]
     Indication: INFECTION PROPHYLAXIS
     Dosage: Q6H
     Route: 042
     Dates: start: 20090723, end: 20090725
  94. RED BLOOD CELLS [Concomitant]
     Route: 042
     Dates: start: 20081129, end: 20081129
  95. UNCODEABLE ^UNCLASSIFIABLE^ [Concomitant]
     Route: 042
     Dates: start: 20081228, end: 20081228
  96. MOBENOL [Concomitant]
     Dosage: 0.4 MG (DAILY DOSE), QD, INTRAVENOUS
     Route: 042
     Dates: start: 20090723, end: 20090723
  97. DEXTROSE [Concomitant]
     Route: 042
     Dates: start: 20090722, end: 20090727
  98. ULTRACET [Concomitant]
     Dosage: 1 DF (DAILY DOSE), PRN, ORAL
     Route: 048
     Dates: start: 20090728, end: 20090730
  99. KETOROLAC TROMETHAMINE [Concomitant]
     Dosage: 30 MG, QOD
     Route: 030
     Dates: start: 20091218, end: 20091218
  100. KETOROLAC TROMETHAMINE [Concomitant]
     Dosage: 30 MG, QD
     Route: 042
     Dates: start: 20100205, end: 20100205
  101. GABAPENTIN [Concomitant]
     Indication: NEUROPATHY PERIPHERAL
     Dosage: 300 MG (DAILY DOSE), QD, ORAL
     Route: 048
     Dates: start: 20081020, end: 20090309
  102. DEXTROSE 5% [Concomitant]
     Indication: PROPHYLAXIS
     Dosage: 1000 MG (DAILY DOSE), QD, INTRAVENOUS
     Route: 042
     Dates: start: 20081127, end: 20081202
  103. DEXTROSE 5% [Concomitant]
     Indication: PAIN PROPHYLAXIS
     Dosage: 1000 ML (DAILY DOSE), QD, INTRAVENOUS
     Route: 042
     Dates: start: 20081229, end: 20091229
  104. NAXEN [Concomitant]
     Indication: PAIN IN EXTREMITY
     Dosage: 500 MG, BID
     Route: 048
     Dates: start: 20091220, end: 20091221
  105. KETOROLAC [Concomitant]
     Indication: ABDOMINAL PAIN
     Dosage: 30 MG (DAILY DOSE), QD, INTRAVENOUS
     Route: 042
     Dates: start: 20081228, end: 20081228
  106. NUTRIFLEX [AMINO ACIDS NOS,ELECTROLYTES NOS,GLUCOSE] [Concomitant]
     Dosage: 1000 ML (DAILY DOSE), QD, INTRAVENOUS
     Route: 042
     Dates: start: 20081230, end: 20081230
  107. CALCIUM GLUCONATE [Concomitant]
     Indication: PANCREATIC PSEUDOCYST
     Dosage: 2 G (DAILY DOSE), QD, INTRAVENOUS
     Route: 042
     Dates: start: 20081226, end: 20081226
  108. TAZOCIN [Concomitant]
     Indication: INFECTION PROPHYLAXIS
     Route: 042
     Dates: start: 20081128, end: 20081202
  109. SOYA OIL [Concomitant]
     Indication: DECREASED APPETITE
     Dosage: 500 ML (DAILY DOSE), QD, INTRAVENOUS
     Route: 042
     Dates: start: 20090101, end: 20090101
  110. CALCIUM CARBONATE [Concomitant]
     Indication: PROPHYLAXIS
     Route: 048
     Dates: start: 20090102, end: 20090102
  111. BEECOM HEXA [Concomitant]
     Indication: GASTRITIS PROPHYLAXIS
     Route: 042
     Dates: start: 20090722, end: 20090727

REACTIONS (1)
  - FEMALE GENITAL TRACT FISTULA [None]
